FAERS Safety Report 12823767 (Version 2)
Quarter: 2016Q4

REPORT INFORMATION
  Report Type: Spontaneous
  Country: US (occurrence: US)
  Receive Date: 20161007
  Receipt Date: 20161102
  Transmission Date: 20170207
  Serious: No
  Sender: FDA-Public Use
  Company Number: US-GLAXOSMITHKLINE-US2016GSK144614

PATIENT
  Age: 68 Year
  Sex: Female

DRUGS (2)
  1. TRULICITY [Concomitant]
     Active Substance: DULAGLUTIDE
     Indication: PRODUCT USED FOR UNKNOWN INDICATION
     Route: 042
  2. TANZEUM [Suspect]
     Active Substance: ALBIGLUTIDE
     Indication: TYPE 2 DIABETES MELLITUS
     Dosage: 50 MG, WE
     Route: 042
     Dates: start: 201608

REACTIONS (6)
  - Intentional device misuse [Unknown]
  - Device use error [Unknown]
  - Product quality issue [Unknown]
  - Nervousness [Not Recovered/Not Resolved]
  - Drug administered in wrong device [Unknown]
  - Product preparation error [Unknown]

NARRATIVE: CASE EVENT DATE: 201608
